FAERS Safety Report 5136555-1 (Version None)
Quarter: 2006Q4

REPORT INFORMATION
  Report Type: 
  Country: None (occurrence: None)
  Receive Date: 20061011
  Receipt Date: 20060927
  Transmission Date: 20070319
  Serious: Yes (Hospitalization)
  Sender: FDA-Public Use
  Company Number: WSDF_00579

PATIENT
  Age: 73 Year
  Sex: Male
  Weight: 91.6 kg

DRUGS (8)
  1. WINRHO SDF [Suspect]
     Indication: IDIOPATHIC THROMBOCYTOPENIC PURPURA
     Dosage: 4580 MCG ONCE IV
     Route: 042
     Dates: start: 20060926, end: 20060926
  2. DUTASTERIDE [Concomitant]
  3. SYNTHROID [Concomitant]
  4. SINGULAIR [Concomitant]
  5. ZOCOR [Concomitant]
  6. AMBIEN [Concomitant]
  7. AZMACORT [Concomitant]
  8. FLOMAX [Concomitant]

REACTIONS (7)
  - ACTIVATED PARTIAL THROMBOPLASTIN TIME PROLONGED [None]
  - DISSEMINATED INTRAVASCULAR COAGULATION [None]
  - HAEMATOCHEZIA [None]
  - HAEMOGLOBIN DECREASED [None]
  - HAEMOGLOBINURIA [None]
  - HAEMOLYSIS [None]
  - RENAL FAILURE [None]
